FAERS Safety Report 10146966 (Version 1)
Quarter: 2014Q2

REPORT INFORMATION
  Report Type: Spontaneous
  Country: FR (occurrence: FR)
  Receive Date: 20140501
  Receipt Date: 20140501
  Transmission Date: 20141212
  Serious: Yes (Life-Threatening, Hospitalization, Other)
  Sender: FDA-Public Use
  Company Number: FR-ELI_LILLY_AND_COMPANY-FR201404007651

PATIENT
  Age: 26 Year
  Sex: Female

DRUGS (2)
  1. ZYPREXA [Suspect]
     Indication: HYSTERICAL PSYCHOSIS
     Dosage: UNK, UNKNOWN
     Route: 048
     Dates: end: 20140114
  2. DEPAKOTE [Suspect]
     Indication: HYSTERICAL PSYCHOSIS
     Dosage: UNK, UNKNOWN
     Route: 048
     Dates: end: 20140114

REACTIONS (8)
  - Coma [Recovered/Resolved]
  - Poisoning [Recovered/Resolved]
  - Lung disorder [Recovered/Resolved]
  - Suicide attempt [Unknown]
  - Encephalopathy [Unknown]
  - Renal failure acute [Unknown]
  - Rhabdomyolysis [Unknown]
  - Disturbance in attention [Unknown]
